FAERS Safety Report 11774730 (Version 3)
Quarter: 2016Q1

REPORT INFORMATION
  Report Type: Spontaneous
  Country: FR (occurrence: FR)
  Receive Date: 20151124
  Receipt Date: 20160119
  Transmission Date: 20160525
  Serious: Yes (Hospitalization)
  Sender: FDA-Public Use
  Company Number: FR-SUNOVION-2015SUN000967

PATIENT

DRUGS (6)
  1. ZEBINIX [Suspect]
     Active Substance: ESLICARBAZEPINE ACETATE
     Indication: EPILEPSY
     Dosage: 400 MG, 2X / DAY
     Route: 048
     Dates: start: 201402
  2. CRESTOR [Concomitant]
     Active Substance: ROSUVASTATIN CALCIUM
  3. CORDARONE [Suspect]
     Active Substance: AMIODARONE HYDROCHLORIDE
     Indication: ATRIAL FLUTTER
     Dosage: 200 MG, DAILY
     Route: 048
     Dates: start: 20151005
  4. AMLOR [Concomitant]
     Active Substance: AMLODIPINE BESYLATE
  5. PREVISCAN                          /00789001/ [Concomitant]
     Active Substance: FLUINDIONE
  6. CORTANCYL [Concomitant]
     Active Substance: PREDNISONE

REACTIONS (6)
  - Hyponatraemia [Unknown]
  - Fall [Unknown]
  - Head injury [Unknown]
  - Drug dose titration not performed [Unknown]
  - Inappropriate schedule of drug administration [Unknown]
  - General physical health deterioration [Unknown]

NARRATIVE: CASE EVENT DATE: 201402
